FAERS Safety Report 7521408-1 (Version None)
Quarter: 2011Q2

REPORT INFORMATION
  Report Type: 
  Country: None (occurrence: None)
  Receive Date: 20110524
  Receipt Date: 20110513
  Transmission Date: 20111010
  Serious: Yes (Hospitalization)
  Sender: FDA-Public Use
  Company Number: 2011-0527

PATIENT
  Age: 59 Year
  Sex: Female
  Weight: 72.5 kg

DRUGS (9)
  1. OMEGA-3-ACID ETHYL ESTERS (LOVAZA) [Concomitant]
  2. LEVOTHYROXINE SODIUM [Concomitant]
  3. ESTRADIOL [Concomitant]
  4. SOMATULINE DEPOT [Suspect]
     Indication: ACROMEGALY
     Dosage: 90 MG (90 MG, 1 IN 28 D),SUBCUTANEOUS, 60 MG (60 MQ,1 IN 28 D),SUBCUTANEOUS
     Route: 058
     Dates: start: 20100901, end: 20110201
  5. CENTRUM SILVER MULTIVITAMIN(MULTIVITAMIN /00831701/) [Concomitant]
  6. VITAMIN D [Concomitant]
  7. PRILOSEC [Concomitant]
  8. ALPRAZOLAM [Concomitant]
  9. METOPROLOL TARTRATE [Concomitant]

REACTIONS (10)
  - SKIN DISORDER [None]
  - DIVERTICULUM [None]
  - PAIN [None]
  - BODY FAT DISORDER [None]
  - HEADACHE [None]
  - NEPHROLITHIASIS [None]
  - CHOLELITHIASIS [None]
  - DIZZINESS [None]
  - PANCREATITIS [None]
  - HEPATIC STEATOSIS [None]
